FAERS Safety Report 7028026-2 (Version None)
Quarter: 2010Q4

REPORT INFORMATION
  Report Type: 
  Country: None (occurrence: None)
  Receive Date: 20101005
  Receipt Date: 20100927
  Transmission Date: 20110411
  Serious: Yes (Death, Hospitalization)
  Sender: FDA-Public Use
  Company Number: JP-BAYER-201012150BYL

PATIENT
  Age: 66 Year
  Sex: Male
  Weight: 66 kg

DRUGS (16)
  1. NEXAVAR [Suspect]
     Indication: HEPATIC NEOPLASM MALIGNANT
     Dosage: TOTAL DAILY DOSE: 800 MG  UNIT DOSE: 200 MG
     Route: 048
     Dates: start: 20100426, end: 20100507
  2. CISPLATIN [Concomitant]
     Indication: REGIONAL CHEMOTHERAPY
     Route: 042
     Dates: start: 20100426, end: 20100426
  3. NORVASC [Concomitant]
     Dosage: UNIT DOSE: 2.5 MG
     Route: 048
     Dates: end: 20100615
  4. LOXOPROFEN [Concomitant]
     Dosage: UNIT DOSE: 60 MG
     Route: 048
     Dates: end: 20100615
  5. FAMOTIDINE D [Concomitant]
     Dosage: UNIT DOSE: 20 MG
     Route: 048
     Dates: end: 20100615
  6. KERATINAMIN [Concomitant]
     Route: 061
     Dates: start: 20100422, end: 20100507
  7. MAGLAX [Concomitant]
     Indication: CONSTIPATION PROPHYLAXIS
     Dosage: UNIT DOSE: 330 MG
     Route: 048
     Dates: start: 20100429, end: 20100615
  8. LASIX [Concomitant]
     Dosage: UNIT DOSE: 40 MG
     Route: 048
     Dates: start: 20100515, end: 20100520
  9. LASIX [Concomitant]
     Dosage: UNIT DOSE: 40 MG
     Route: 048
     Dates: start: 20100521, end: 20100615
  10. LASIX [Concomitant]
     Dosage: UNIT DOSE: 20 MG
     Route: 048
     Dates: start: 20100510, end: 20100614
  11. BARACLUDE [Concomitant]
     Dosage: UNIT DOSE: 0.5 MG
     Route: 048
     Dates: start: 20100506, end: 20100615
  12. PENTAZOCINE LACTATE [Concomitant]
     Indication: PREMEDICATION
     Route: 030
     Dates: start: 20100426, end: 20100426
  13. ATARAX [Concomitant]
     Indication: PREMEDICATION
     Route: 030
     Dates: start: 20100426, end: 20100426
  14. GRANISETRON HCL [Concomitant]
     Indication: PROPHYLAXIS
     Route: 042
     Dates: start: 20100426, end: 20100426
  15. IA-CALL [Concomitant]
     Route: 013
     Dates: start: 20100426, end: 20100426
  16. MANNIGEN [Concomitant]
     Dosage: UNIT DOSE: 20 %
     Route: 042
     Dates: start: 20100426, end: 20100426

REACTIONS (6)
  - ASPARTATE AMINOTRANSFERASE INCREASED [None]
  - HYPERBILIRUBINAEMIA [None]
  - HYPERTENSION [None]
  - HYPOGLYCAEMIA [None]
  - HYPOPHOSPHATAEMIA [None]
  - MALIGNANT NEOPLASM PROGRESSION [None]
